FAERS Safety Report 8531872-7 (Version None)
Quarter: 2012Q3

REPORT INFORMATION
  Report Type: 
  Country: None (occurrence: None)
  Receive Date: 20120723
  Receipt Date: 20120717
  Transmission Date: 20120928
  Serious: Yes (Other)
  Sender: FDA-Public Use
  Company Number: US-MYLANLABS-2012S1012279

PATIENT
  Age: 69 Year
  Sex: Female

DRUGS (4)
  1. CARVEDILOL [Suspect]
     Indication: HEART RATE INCREASED
     Route: 048
     Dates: start: 20120501, end: 20120630
  2. AMBIEN [Concomitant]
     Indication: INSOMNIA
     Route: 048
  3. CARVEDILOL [Suspect]
     Indication: BLOOD PRESSURE INCREASED
     Route: 048
     Dates: start: 20120501, end: 20120630
  4. DIOVAN [Suspect]
     Indication: BLOOD PRESSURE INCREASED
     Route: 048
     Dates: start: 20120517

REACTIONS (12)
  - DRUG EFFECT DECREASED [None]
  - SOMNOLENCE [None]
  - SKIN EXFOLIATION [None]
  - DIZZINESS [None]
  - HYPERTENSION [None]
  - PALPITATIONS [None]
  - MYALGIA [None]
  - PAIN IN EXTREMITY [None]
  - ERYTHEMA [None]
  - ANXIETY [None]
  - VERTIGO [None]
  - GASTRITIS [None]
